FAERS Safety Report 18227910 (Version 1)
Quarter: 2020Q3

REPORT INFORMATION
  Report Type: Spontaneous
  Country: CH (occurrence: CH)
  Receive Date: 20200903
  Receipt Date: 20200903
  Transmission Date: 20201103
  Serious: Yes (Hospitalization)
  Sender: FDA-Public Use
  Company Number: CH-ASTRAZENECA-2020SF08692

PATIENT
  Age: 77 Year
  Sex: Female
  Weight: 68.7 kg

DRUGS (6)
  1. CONCOR [Suspect]
     Active Substance: BISOPROLOL FUMARATE
     Route: 048
  2. SEQUASE [Suspect]
     Active Substance: QUETIAPINE FUMARATE
     Route: 048
  3. METAMUCIL [Suspect]
     Active Substance: PLANTAGO SEED
     Route: 048
  4. VESICARE [Suspect]
     Active Substance: SOLIFENACIN SUCCINATE
     Route: 048
  5. DEPAKINE CHRONO [Suspect]
     Active Substance: VALPROATE SODIUM
     Route: 048
  6. SEQUASE [Concomitant]
     Active Substance: QUETIAPINE FUMARATE
     Route: 048
     Dates: end: 20200702

REACTIONS (2)
  - Product administration error [Recovered/Resolved]
  - Delirium [Recovered/Resolved]

NARRATIVE: CASE EVENT DATE: 20200702
